FAERS Safety Report 17082700 (Version 8)
Quarter: 2020Q4

REPORT INFORMATION
  Report Type: Spontaneous
  Country: US (occurrence: US)
  Receive Date: 20191127
  Receipt Date: 20201106
  Transmission Date: 20210113
  Serious: Yes (Other)
  Sender: FDA-Public Use
  Company Number: NVSC2019US050105

PATIENT
  Sex: Female
  Weight: 63.5 kg

DRUGS (3)
  1. ZOFRAN [Suspect]
     Active Substance: ONDANSETRON HYDROCHLORIDE
     Indication: MORNING SICKNESS
     Dosage: 04 MG, Q8H
     Route: 042
     Dates: start: 20140116, end: 20140215
  2. ZOFRAN [Suspect]
     Active Substance: ONDANSETRON HYDROCHLORIDE
     Indication: MORNING SICKNESS
     Dosage: 08 MG, QD
     Route: 048
     Dates: start: 20140130, end: 201403
  3. SYNTHROID [Concomitant]
     Active Substance: LEVOTHYROXINE SODIUM
     Indication: HYPOTHYROIDISM
     Dosage: 1 DF, QD
     Route: 048

REACTIONS (29)
  - Tremor [Unknown]
  - Toothache [Unknown]
  - Cough [Unknown]
  - Flank pain [Unknown]
  - Pain in extremity [Unknown]
  - Pyrexia [Unknown]
  - Constipation [Unknown]
  - Micturition urgency [Unknown]
  - Upper respiratory tract infection [Unknown]
  - Anxiety [Unknown]
  - Asthenia [Unknown]
  - Anhedonia [Unknown]
  - Abdominal distension [Unknown]
  - Dizziness [Unknown]
  - Nephrolithiasis [Unknown]
  - Oropharyngeal pain [Unknown]
  - Urinary tract infection [Unknown]
  - Back pain [Unknown]
  - Uterine contractions abnormal [Unknown]
  - Hydronephrosis [Unknown]
  - Maternal exposure during pregnancy [Unknown]
  - Emotional distress [Unknown]
  - Rhinorrhoea [Unknown]
  - Product use in unapproved indication [Unknown]
  - Placenta praevia [Unknown]
  - Essential hypertension [Unknown]
  - Chest pain [Unknown]
  - Pain [Unknown]
  - Abdominal pain [Unknown]
